FAERS Safety Report 4898940-2 (Version None)
Quarter: 2006Q1

REPORT INFORMATION
  Report Type: 
  Country: None (occurrence: None)
  Receive Date: 20060106
  Receipt Date: 20051011
  Transmission Date: 20060701
  Serious: No
  Sender: FDA-Public Use
  Company Number: 200512171BWH

PATIENT
  Age: 62 Year
  Sex: Male

DRUGS (6)
  1. LEVITRA [Suspect]
     Dosage: 10 MG, TOTAL DAILY; 20 MG, TIW  : ORAL
     Route: 048
  2. LEVITRA [Suspect]
     Dosage: 10 MG, TOTAL DAILY; 20 MG, TIW  : ORAL
     Route: 048
  3. ATENOLOL [Concomitant]
  4. HYDROCHLOROTHIAZIDE [Concomitant]
  5. ETODOLAC [Concomitant]
  6. SIMVASTATIN [Concomitant]

REACTIONS (1)
  - ERECTILE DYSFUNCTION [None]
